FAERS Safety Report 22542047 (Version 1)
Quarter: 2023Q2

REPORT INFORMATION
  Report Type: Spontaneous
  Country: US (occurrence: US)
  Receive Date: 20230609
  Receipt Date: 20230609
  Transmission Date: 20230722
  Serious: Yes (Other)
  Sender: FDA-Public Use
  Company Number: US-BEH-2023159494

PATIENT
  Age: 16 Year
  Sex: Male

DRUGS (2)
  1. BERINERT [Suspect]
     Active Substance: HUMAN C1-ESTERASE INHIBITOR
     Indication: Hereditary angioedema
     Dosage: 42 MILLILITER, PRN
     Route: 042
     Dates: start: 201606
  2. BERINERT [Suspect]
     Active Substance: HUMAN C1-ESTERASE INHIBITOR
     Indication: Hereditary angioedema
     Dosage: 42 MILLILITER, PRN
     Route: 042
     Dates: start: 201606

REACTIONS (1)
  - Joint injury [Unknown]

NARRATIVE: CASE EVENT DATE: 20230516
